FAERS Safety Report 7982853-3 (Version None)
Quarter: 2011Q4

REPORT INFORMATION
  Report Type: 
  Country: None (occurrence: None)
  Receive Date: 20111215
  Receipt Date: 20111213
  Transmission Date: 20120403
  Serious: Yes (Other)
  Sender: FDA-Public Use
  Company Number: US-SHIONOGI, INC-2011000279

PATIENT

DRUGS (2)
  1. BENADRYL [Concomitant]
  2. ORAPRED ODT [Suspect]
     Indication: URTICARIA
     Dosage: 15 MG, UNK
     Dates: start: 20111210, end: 20111210

REACTIONS (3)
  - DISCOMFORT [None]
  - DROOLING [None]
  - LETHARGY [None]
